FAERS Safety Report 23068547 (Version 1)
Quarter: 2023Q4

REPORT INFORMATION
  Report Type: Spontaneous
  Country: IN (occurrence: IN)
  Receive Date: 20231016
  Receipt Date: 20231016
  Transmission Date: 20240110
  Serious: Yes (Other)
  Sender: FDA-Public Use
  Company Number: IN-drreddys-SPO/IND/23/0179123

PATIENT
  Age: 30 Year
  Sex: Male

DRUGS (11)
  1. PREGABALIN [Suspect]
     Active Substance: PREGABALIN
     Indication: Euphoric mood
     Dosage: 2-4/DAY
  2. PREGABALIN [Suspect]
     Active Substance: PREGABALIN
     Dosage: LAST 2-3 YEARS, GRADUALLY INCREASED THE AMOUNT OF PREGABALIN TO 20 CAPSULES (6000 MG)
  3. PREGABALIN [Suspect]
     Active Substance: PREGABALIN
     Dosage: GRADUALLY INCREASED
  4. PREGABALIN [Suspect]
     Active Substance: PREGABALIN
     Dosage: 2-4/DAY
  5. PREGABALIN [Suspect]
     Active Substance: PREGABALIN
     Dosage: TAPERING ITS DOSE TO 150 MG/DAY
  6. TRAMADOL [Suspect]
     Active Substance: TRAMADOL\TRAMADOL HYDROCHLORIDE
     Indication: Euphoric mood
  7. TRAMADOL [Suspect]
     Active Substance: TRAMADOL\TRAMADOL HYDROCHLORIDE
     Dosage: AMOUNT OF TRAMADOL INCREASED TO 2-4 TABLETS/DAY DURING 2-3 MONTHS DURATION
  8. TRAMADOL [Suspect]
     Active Substance: TRAMADOL\TRAMADOL HYDROCHLORIDE
     Dosage: 8-10 TABLETS DAILY
  9. TRAMADOL [Suspect]
     Active Substance: TRAMADOL\TRAMADOL HYDROCHLORIDE
     Dosage: AMOUNT OF TRAMADOL INCREASED TO 2-4 TABLETS/DAY DURING 2-3 MONTHS DURATION
  10. TRAMADOL [Suspect]
     Active Substance: TRAMADOL\TRAMADOL HYDROCHLORIDE
     Dosage: 8-10 TABLETS DAILY
  11. TRAMADOL [Suspect]
     Active Substance: TRAMADOL\TRAMADOL HYDROCHLORIDE
     Dosage: 8-10 TABLETS DAILY, DOSE REDUCED

REACTIONS (13)
  - Generalised tonic-clonic seizure [Recovered/Resolved]
  - Drug withdrawal syndrome [Recovering/Resolving]
  - Drug abuse [Recovered/Resolved]
  - Decreased appetite [Unknown]
  - Yawning [Unknown]
  - Restlessness [Unknown]
  - Lethargy [Unknown]
  - Anxiety [Unknown]
  - Somnolence [Unknown]
  - Fatigue [Unknown]
  - Pain [Unknown]
  - Depressed mood [Unknown]
  - Product use in unapproved indication [Unknown]
